FAERS Safety Report 20489192 (Version 1)
Quarter: 2022Q1

REPORT INFORMATION
  Report Type: Spontaneous
  Country: US (occurrence: US)
  Receive Date: 20220218
  Receipt Date: 20220218
  Transmission Date: 20220423
  Serious: No
  Sender: FDA-Public Use
  Company Number: US-BIOGEN-2022BI01097797

PATIENT
  Sex: Female

DRUGS (1)
  1. TECFIDERA [Suspect]
     Active Substance: DIMETHYL FUMARATE
     Indication: Multiple sclerosis
     Route: 065
     Dates: start: 20141008

REACTIONS (3)
  - Gait inability [Not Recovered/Not Resolved]
  - Ankle fracture [Unknown]
  - Peroneal nerve palsy [Unknown]

NARRATIVE: CASE EVENT DATE: 20170101
